FAERS Safety Report 6912054-9 (Version None)
Quarter: 2010Q3

REPORT INFORMATION
  Report Type: 
  Country: None (occurrence: None)
  Receive Date: 20100806
  Receipt Date: 20071112
  Transmission Date: 20110219
  Serious: Yes (Other)
  Sender: FDA-Public Use
  Company Number: US-PFIZER INC-2007095983

PATIENT
  Age: 60 Year
  Sex: Female

DRUGS (2)
  1. DILANTIN [Suspect]
     Indication: CONVULSION
  2. PHENOBARBITAL [Suspect]
     Indication: CONVULSION

REACTIONS (1)
  - CONVULSION [None]
